FAERS Safety Report 9486307 (Version 1)
Quarter: 2013Q3

REPORT INFORMATION
  Report Type: Spontaneous
  Country: US (occurrence: None)
  Receive Date: 20130827
  Receipt Date: 20130827
  Transmission Date: 20140515
  Serious: No
  Sender: FDA-Public Use
  Company Number: None

PATIENT
  Age: 52 Year
  Sex: Female
  Weight: 92.08 kg

DRUGS (7)
  1. TECFIDERA [Suspect]
     Indication: RELAPSING-REMITTING MULTIPLE SCLEROSIS
     Dosage: 240 MG TWICE DAILY TAKEN BY MOUTH
     Route: 048
     Dates: start: 20130809, end: 20130826
  2. ATACAND [Suspect]
  3. SIMVISTATIN [Concomitant]
  4. FLUOXETINE [Concomitant]
  5. HCTZ [Concomitant]
  6. BUFFERED ASPIRIN [Concomitant]
  7. IBUPROFEN [Concomitant]

REACTIONS (3)
  - Nausea [None]
  - Vomiting [None]
  - Diarrhoea [None]
